FAERS Safety Report 8790630 (Version 1)
Quarter: 2012Q4

REPORT INFORMATION
  Report Type: Spontaneous
  Country: US (occurrence: None)
  Receive Date: 20120912
  Receipt Date: 20120912
  Transmission Date: 20130627
  Serious: Yes (Other)
  Sender: FDA-Public Use
  Company Number: None

PATIENT
  Age: 62 Year
  Sex: Female
  Weight: 72.58 kg

DRUGS (9)
  1. CLONAZEPAM [Suspect]
     Indication: ANXIETY
     Dates: start: 20111103, end: 20120703
  2. CLONAZEPAM [Suspect]
     Indication: PANIC DISORDER
     Dates: start: 20111103, end: 20120703
  3. CLONAZEPAM [Suspect]
     Dates: start: 20111103, end: 20120703
  4. CLONAZEPAM [Suspect]
     Indication: ANXIETY
  5. CLONAZEPAM [Suspect]
     Indication: PANIC DISORDER
  6. CLONAZEPAM [Suspect]
  7. ALBUTEROL [Concomitant]
  8. BENYDRAL [Concomitant]
  9. TYLENOL [Concomitant]

REACTIONS (18)
  - Hypersensitivity [None]
  - Pruritus generalised [None]
  - Rash [None]
  - Flushing [None]
  - Urticaria [None]
  - Dysuria [None]
  - Skin disorder [None]
  - Dysgraphia [None]
  - Amnesia [None]
  - Fall [None]
  - Muscle spasms [None]
  - Skin burning sensation [None]
  - Arthralgia [None]
  - Pain [None]
  - Withdrawal syndrome [None]
  - Blepharospasm [None]
  - Constipation [None]
  - Unevaluable event [None]
